FAERS Safety Report 6273726-5 (Version None)
Quarter: 2009Q3

REPORT INFORMATION
  Report Type: 
  Country: None (occurrence: None)
  Receive Date: 20090720
  Receipt Date: 20071031
  Transmission Date: 20100115
  Serious: Yes (Hospitalization, Other)
  Sender: FDA-Public Use
  Company Number: US-ASTRAZENECA-2006UW24058

PATIENT
  Age: 17464 Day
  Sex: Female
  Weight: 84.4 kg

DRUGS (13)
  1. SEROQUEL [Suspect]
     Indication: SLEEP DISORDER
     Dosage: STRENGTH-  25MG, 100MG  DOSE-  25-600 MG DAILY
     Route: 048
     Dates: start: 20030730
  2. SEROQUEL [Suspect]
     Indication: STRESS
     Dosage: STRENGTH-  25MG, 100MG  DOSE-  25-600 MG DAILY
     Route: 048
     Dates: start: 20030730
  3. ZYPREXA [Concomitant]
     Dosage: STRENGTH- 2.5MG, 40MG, 15MG.  DOSE- 5-15 MG DAILY
     Route: 048
     Dates: start: 19971009
  4. WELLBUTRIN XL [Concomitant]
     Dosage: STRENGTH- 50MG, 150MG  DOSE- 50-150 MG DAILY
     Route: 048
     Dates: start: 19990608
  5. XANAX XR [Concomitant]
     Indication: ANXIETY
     Dosage: STRENGTH- 0.25MG, 2MG, 3MG  DOSE-  0.5-6 MG DAILY
     Route: 048
     Dates: start: 20010807
  6. XANAX XR [Concomitant]
     Indication: PANIC ATTACK
     Dosage: STRENGTH- 0.25MG, 2MG, 3MG  DOSE-  0.5-6 MG DAILY
     Route: 048
     Dates: start: 20010807
  7. ALTACE [Concomitant]
     Indication: HYPERTENSION
     Route: 048
     Dates: start: 20041210
  8. ZOLOFT [Concomitant]
     Dosage: DOSE-  50-150 MG DAILY
     Route: 048
     Dates: start: 19971009
  9. AMBIEN [Concomitant]
     Indication: SLEEP DISORDER
     Dosage: STRENGTH-  5MG, 10MG  DOSE-  5-10 MG DAILY
     Route: 048
     Dates: start: 19971009
  10. KLONOPIN [Concomitant]
     Indication: SLEEP DISORDER
     Dosage: 0.5-3 MG
     Dates: start: 20000111
  11. LANTUS [Concomitant]
     Indication: DIABETES MELLITUS
     Dosage: DOSE-  50-100 UNITS/ML DAILY
     Route: 058
     Dates: start: 20020812
  12. HUMALOG [Concomitant]
     Indication: DIABETES MELLITUS
     Dosage: STRENGTH 100U/ML DOSE-  30-90 UNITS/ML DAILY
     Route: 058
     Dates: start: 20030617
  13. FUROSEMIDE [Concomitant]
     Dates: start: 20040609

REACTIONS (9)
  - DIABETES MELLITUS [None]
  - DIABETES MELLITUS INADEQUATE CONTROL [None]
  - DIABETES MELLITUS MALNUTRITION-RELATED [None]
  - DIABETIC FOOT [None]
  - DIABETIC NEPHROPATHY [None]
  - DIABETIC NEUROPATHY [None]
  - DIABETIC RETINOPATHY [None]
  - KETOACIDOSIS [None]
  - PANCREATITIS [None]
